FAERS Safety Report 21436593 (Version 2)
Quarter: 2022Q4

REPORT INFORMATION
  Report Type: Spontaneous
  Country: EG (occurrence: EG)
  Receive Date: 20221010
  Receipt Date: 20221025
  Transmission Date: 20230112
  Serious: Yes (Other)
  Sender: FDA-Public Use
  Company Number: EG-NOVOPROD-966654

PATIENT
  Sex: Female

DRUGS (5)
  1. INSULIN HUMAN [Suspect]
     Active Substance: INSULIN HUMAN
     Indication: Product used for unknown indication
     Dosage: 90 IU, QD
     Route: 058
     Dates: start: 2009
  2. CIDOPHAGE [Concomitant]
     Indication: Type 2 diabetes mellitus
     Dosage: UNK(TWO TABLET WITH BIG MEAL)
     Dates: end: 2020
  3. GLICLAZIDE [Concomitant]
     Active Substance: GLICLAZIDE
     Indication: Type 2 diabetes mellitus
     Dosage: UNK(1 TABLET WITH EACH MEAL)
     Dates: end: 2020
  4. INSULIN HUMAN [Suspect]
     Active Substance: INSULIN HUMAN
     Dosage: 80 IU, QD
     Route: 058
  5. INSULIN HUMAN [Suspect]
     Active Substance: INSULIN HUMAN
     Indication: Product used for unknown indication
     Dosage: 80 IU, QD
     Route: 058
     Dates: start: 2020

REACTIONS (9)
  - Cataract operation [Unknown]
  - Cataract operation [Unknown]
  - Onychomadesis [Recovered/Resolved]
  - Pollakiuria [Unknown]
  - Hypoaesthesia [Not Recovered/Not Resolved]
  - Pain in extremity [Unknown]
  - Heart rate increased [Not Recovered/Not Resolved]
  - Rash [Not Recovered/Not Resolved]
  - Drug ineffective [Not Recovered/Not Resolved]

NARRATIVE: CASE EVENT DATE: 20090101
